FAERS Safety Report 22590390 (Version 1)
Quarter: 2023Q2

REPORT INFORMATION
  Report Type: Report from Study
  Country: DE (occurrence: DE)
  Receive Date: 20230612
  Receipt Date: 20230612
  Transmission Date: 20230722
  Serious: Yes (Other)
  Sender: FDA-Public Use
  Company Number: DE-TAKEDA-ALL1-2014-00220

PATIENT
  Age: 17 Year
  Sex: Male

DRUGS (10)
  1. IDURSULFASE [Suspect]
     Active Substance: IDURSULFASE
     Indication: Mucopolysaccharidosis II
     Dosage: 0.5 MILLIGRAM/KILOGRAM, 1/WEEK
     Route: 042
     Dates: start: 20060906
  2. IDURSULFASE [Suspect]
     Active Substance: IDURSULFASE
     Dosage: 0.59 MILLIGRAM/KILOGRAM, 1/WEEK
     Route: 042
     Dates: start: 20100923
  3. LORAZEPAM [Concomitant]
     Active Substance: LORAZEPAM
     Indication: Sleep disorder
     Dosage: 1 MG, AS REQ^D
     Route: 060
     Dates: start: 20100729, end: 20121029
  4. GENISTEIN [Concomitant]
     Active Substance: GENISTEIN
     Indication: Product used for unknown indication
     Dosage: 8 MG, 2X/DAY:BID
     Route: 048
     Dates: start: 2010, end: 20120131
  5. POLYETHYLENE GLYCOLS [Concomitant]
     Active Substance: POLYETHYLENE GLYCOLS
     Indication: Gastrointestinal disorder
     Dosage: 2 DF, 1X/DAY:QD
     Route: 048
     Dates: start: 2009
  6. MELATONIN [Concomitant]
     Active Substance: MELATONIN
     Indication: Sleep disorder
     Dosage: UNK
     Route: 048
     Dates: end: 2009
  7. MELPERONE [Concomitant]
     Active Substance: MELPERONE
     Indication: Behaviour disorder
     Dosage: UNK
     Route: 048
     Dates: start: 20090801
  8. LAMOTRIGINE [Concomitant]
     Active Substance: LAMOTRIGINE
     Indication: Nervous system disorder
     Dosage: UNK
     Route: 048
     Dates: start: 20101201
  9. ALBUTEROL [Concomitant]
     Active Substance: ALBUTEROL
     Indication: Respiratory disorder
     Dosage: UNK
     Route: 055
     Dates: start: 2012
  10. SULTAMICILLIN [Concomitant]
     Active Substance: SULTAMICILLIN
     Indication: Infection
     Dosage: UNK
     Route: 048
     Dates: start: 201211

REACTIONS (1)
  - Seizure [Recovered/Resolved with Sequelae]

NARRATIVE: CASE EVENT DATE: 20101111
